FAERS Safety Report 6822945-5 (Version None)
Quarter: 2010Q3

REPORT INFORMATION
  Report Type: 
  Country: None (occurrence: None)
  Receive Date: 20100708
  Receipt Date: 20100623
  Transmission Date: 20110219
  Serious: Yes (Hospitalization, Disabling)
  Sender: FDA-Public Use
  Company Number: A0796499A

PATIENT
  Age: 64 Year
  Sex: Female
  Weight: 109.1 kg

DRUGS (11)
  1. AVANDIA [Suspect]
     Dosage: 8MG TWICE PER DAY
     Route: 048
     Dates: start: 19991231, end: 20070409
  2. LEVOTHYROXINE SODIUM [Concomitant]
  3. ACIPHEX [Concomitant]
  4. LISINOPRIL [Concomitant]
  5. LEXAPRO [Concomitant]
  6. NEURONTIN [Concomitant]
  7. CYCLOBENZAPRINE [Concomitant]
  8. AMITRIPTYLINE [Concomitant]
  9. FLONASE [Concomitant]
  10. INSULIN [Concomitant]
  11. OXYCONTIN [Concomitant]

REACTIONS (5)
  - ANGINA UNSTABLE [None]
  - CARDIAC FAILURE CONGESTIVE [None]
  - CORONARY ARTERIAL STENT INSERTION [None]
  - CORONARY ARTERY DISEASE [None]
  - MYOCARDIAL ISCHAEMIA [None]
